FAERS Safety Report 9122766 (Version 1)
Quarter: 2013Q1

REPORT INFORMATION
  Report Type: Spontaneous
  Country: US (occurrence: None)
  Receive Date: 20130130
  Receipt Date: 20130130
  Transmission Date: 20140127
  Serious: Yes (Death)
  Sender: FDA-Public Use
  Company Number: B0859583A

PATIENT
  Age: 29 Year
  Sex: Female

DRUGS (2)
  1. PAROXETINE HYDROCHLORIDE [Suspect]
     Route: 048
  2. FLECAINIDE [Suspect]
     Route: 048

REACTIONS (4)
  - Cardiac arrest [None]
  - Heart rate increased [None]
  - Ventricular tachycardia [None]
  - Haemorrhage intracranial [None]
